FAERS Safety Report 17352079 (Version 1)
Quarter: 2020Q1

REPORT INFORMATION
  Report Type: Spontaneous
  Country: US (occurrence: US)
  Receive Date: 20200130
  Receipt Date: 20200130
  Transmission Date: 20200409
  Serious: No
  Sender: FDA-Public Use
  Company Number: US-BAYER-2020-015947

PATIENT
  Sex: Female

DRUGS (10)
  1. SPIRONOLACTONE. [Concomitant]
     Active Substance: SPIRONOLACTONE
  2. SIMVASTATIN. [Concomitant]
     Active Substance: SIMVASTATIN
  3. THIAMINE. [Concomitant]
     Active Substance: THIAMINE
  4. FUROSEMIDE. [Concomitant]
     Active Substance: FUROSEMIDE
  5. CLARITIN [Suspect]
     Active Substance: LORATADINE
     Indication: HYPERSENSITIVITY
     Dosage: 1 DF, QD
     Route: 048
     Dates: start: 2020, end: 202001
  6. ELIQUIS [Concomitant]
     Active Substance: APIXABAN
  7. CARVEDILOL. [Concomitant]
     Active Substance: CARVEDILOL
  8. VITAMIN B12 [Concomitant]
     Active Substance: CYANOCOBALAMIN
  9. CLARITIN [Suspect]
     Active Substance: LORATADINE
     Indication: NASOPHARYNGITIS
  10. VITAMIN B3 [Concomitant]
     Active Substance: NIACIN

REACTIONS (1)
  - Drug ineffective [Unknown]
